FAERS Safety Report 15641685 (Version 1)
Quarter: 2018Q4

REPORT INFORMATION
  Report Type: Spontaneous
  Country: US (occurrence: US)
  Receive Date: 20181121
  Receipt Date: 20181121
  Transmission Date: 20190205
  Serious: No
  Sender: FDA-Public Use
  Company Number: US-ACCORD-065411

PATIENT
  Age: 54 Year
  Sex: Female
  Weight: 60.78 kg

DRUGS (3)
  1. HYDROCHLOROTHIAZIDE ACCORD [Suspect]
     Active Substance: HYDROCHLOROTHIAZIDE
     Indication: SWELLING
     Dosage: STRENGTH: 25 MG ?QD
     Route: 048
     Dates: start: 20180205, end: 20180228
  2. ADDERALL XR [Concomitant]
     Active Substance: AMPHETAMINE ASPARTATE\AMPHETAMINE SULFATE\DEXTROAMPHETAMINE SACCHARATE\DEXTROAMPHETAMINE SULFATE
     Dosage: STRENGTH: 25 MG
  3. DICLOFENAC [Concomitant]
     Active Substance: DICLOFENAC

REACTIONS (4)
  - Product substitution issue [Unknown]
  - Dizziness [Recovered/Resolved]
  - Gait disturbance [Recovered/Resolved]
  - Condition aggravated [Recovered/Resolved]
